FAERS Safety Report 18474813 (Version 1)
Quarter: 2020Q4

REPORT INFORMATION
  Report Type: Spontaneous
  Country: US (occurrence: US)
  Receive Date: 20201106
  Receipt Date: 20201106
  Transmission Date: 20210114
  Serious: No
  Sender: FDA-Public Use
  Company Number: US-VERTEX PHARMACEUTICALS-2020-001071

PATIENT
  Age: 24 Year
  Sex: Male
  Weight: 49 kg

DRUGS (16)
  1. MELATONIN [Concomitant]
     Active Substance: MELATONIN
  2. OLANZAPINE. [Concomitant]
     Active Substance: OLANZAPINE
  3. URSODIOL. [Concomitant]
     Active Substance: URSODIOL
  4. IRON [Concomitant]
     Active Substance: IRON
  5. TRIKAFTA [Suspect]
     Active Substance: ELEXACAFTOR\IVACAFTOR\TEZACAFTOR
     Indication: CYSTIC FIBROSIS
     Dosage: 2 TABS(100 MG ELEXACAFTOR/ 50 MG TEZACAFTOR/ 75 MG IVACAFTOR) IN AM; 1 TAB(150MG IVACAFTOR) IN PM
     Route: 048
     Dates: start: 20191221
  6. PEPTO-BISMOL [Concomitant]
     Active Substance: BISMUTH SUBSALICYLATE
  7. OMEPRAZOLE. [Concomitant]
     Active Substance: OMEPRAZOLE
  8. NOVOLOG [Concomitant]
     Active Substance: INSULIN ASPART
  9. ALBUTEROL SULFATE HFA [Concomitant]
     Active Substance: ALBUTEROL SULFATE
  10. PULMOZYME [Concomitant]
     Active Substance: DORNASE ALFA
  11. ACETAMINOPHEN. [Concomitant]
     Active Substance: ACETAMINOPHEN
  12. FIBER [Concomitant]
     Active Substance: PSYLLIUM HUSK
  13. MAGNESIUM [Concomitant]
     Active Substance: MAGNESIUM
  14. CREON [Concomitant]
     Active Substance: PANCRELIPASE AMYLASE\PANCRELIPASE LIPASE\PANCRELIPASE PROTEASE
     Dosage: 24-76-120K
  15. LEVEMIR [Concomitant]
     Active Substance: INSULIN DETEMIR
  16. OYSTER SHELL CALCIUM +D [Concomitant]

REACTIONS (9)
  - Pulmonary pain [Recovered/Resolved]
  - Groin pain [Not Recovered/Not Resolved]
  - Abdominal pain lower [Recovering/Resolving]
  - Constipation [Unknown]
  - Diarrhoea [Recovered/Resolved]
  - Insomnia [Not Recovered/Not Resolved]
  - Visual impairment [Unknown]
  - Productive cough [Recovered/Resolved]
  - Abdominal mass [Not Recovered/Not Resolved]

NARRATIVE: CASE EVENT DATE: 20191221
